FAERS Safety Report 22231049 (Version 1)
Quarter: 2023Q2

REPORT INFORMATION
  Report Type: Spontaneous
  Country: US (occurrence: None)
  Receive Date: 20230420
  Receipt Date: 20230420
  Transmission Date: 20230722
  Serious: No
  Sender: FDA-Public Use
  Company Number: US-ROCHE-3175584

PATIENT
  Age: 71 Year
  Sex: Female
  Weight: 63.560 kg

DRUGS (4)
  1. KADCYLA [Suspect]
     Active Substance: ADO-TRASTUZUMAB EMTANSINE
     Indication: Breast cancer metastatic
     Route: 042
     Dates: start: 20220705
  2. GABAPENTIN [Concomitant]
     Active Substance: GABAPENTIN
     Indication: Neuropathy peripheral
     Route: 048
  3. VENLAFAXINE [Concomitant]
     Active Substance: VENLAFAXINE HYDROCHLORIDE
     Indication: Depression
     Dosage: PREVIOUS INDICATION FOR HOT FLASHES, CURRENT INDICATION FOR DEPRESSION
     Route: 048
     Dates: start: 2018
  4. OXYCODONE [Concomitant]
     Active Substance: OXYCODONE
     Indication: Restless legs syndrome
     Dosage: AT BEDTIME
     Route: 048
     Dates: start: 2020

REACTIONS (3)
  - Fatigue [Not Recovered/Not Resolved]
  - Pain [Not Recovered/Not Resolved]
  - Dyspepsia [Not Recovered/Not Resolved]

NARRATIVE: CASE EVENT DATE: 20220801
